FAERS Safety Report 21174194 (Version 1)
Quarter: 2022Q3

REPORT INFORMATION
  Report Type: Spontaneous
  Country: CA (occurrence: CA)
  Receive Date: 20220804
  Receipt Date: 20220804
  Transmission Date: 20221027
  Serious: Yes (Other)
  Sender: FDA-Public Use
  Company Number: CA-002147023-NVSC2022CA170269

PATIENT
  Age: 45 Year
  Sex: Female
  Weight: 49 kg

DRUGS (3)
  1. LUCENTIS [Suspect]
     Active Substance: RANIBIZUMAB
     Indication: Retinal vein occlusion
     Dosage: 0.5 MG
     Route: 065
  2. LUCENTIS [Suspect]
     Active Substance: RANIBIZUMAB
     Dosage: 0.5 MG
     Route: 065
  3. ACETAZOLAMIDE [Concomitant]
     Active Substance: ACETAZOLAMIDE
     Indication: Product used for unknown indication

REACTIONS (10)
  - Blindness unilateral [Unknown]
  - Diabetic retinal oedema [Unknown]
  - Eye haemorrhage [Unknown]
  - Eye inflammation [Unknown]
  - Eye pain [Unknown]
  - Ocular hyperaemia [Unknown]
  - Retinal neovascularisation [Unknown]
  - Visual impairment [Unknown]
  - Vitreous haemorrhage [Unknown]
  - Off label use [Unknown]
